FAERS Safety Report 24074788 (Version 2)
Quarter: 2025Q2

REPORT INFORMATION
  Report Type: Spontaneous
  Country: US (occurrence: US)
  Receive Date: 20240710
  Receipt Date: 20250605
  Transmission Date: 20250717
  Serious: No
  Sender: PIERRE FABRE MEDICAMENT
  Company Number: US-PFM-2023-07404

PATIENT
  Sex: Male
  Weight: 8.408 kg

DRUGS (1)
  1. HEMANGEOL [Suspect]
     Active Substance: PROPRANOLOL HYDROCHLORIDE
     Indication: Haemangioma
     Dosage: 1.8 ML, BID (2/DAY)
     Dates: start: 20230502

REACTIONS (5)
  - Haemangioma [Unknown]
  - Disease recurrence [Unknown]
  - Condition aggravated [Unknown]
  - Illness [Unknown]
  - Product dose omission issue [Unknown]
